FAERS Safety Report 10610591 (Version 1)
Quarter: 2014Q4

REPORT INFORMATION
  Report Type: Spontaneous
  Country: US (occurrence: US)
  Receive Date: 20141126
  Receipt Date: 20141126
  Transmission Date: 20150529
  Serious: Yes (Hospitalization, Other)
  Sender: FDA-Public Use
  Company Number: PHEH2014US023008

PATIENT
  Age: 71 Year
  Sex: Male
  Weight: 121.4 kg

DRUGS (15)
  1. ZOSYN [Suspect]
     Active Substance: PIPERACILLIN SODIUM\TAZOBACTAM SODIUM
     Indication: ATYPICAL PNEUMONIA
     Dosage: UNK
     Route: 065
     Dates: start: 201409, end: 201409
  2. PROVENGE [Suspect]
     Active Substance: SIPULEUCEL-T
     Indication: PROSTATE CANCER METASTATIC
     Dosage: 250 ML, UNK
     Route: 042
     Dates: start: 20140509
  3. LUPRON [Concomitant]
     Active Substance: LEUPROLIDE ACETATE
     Indication: PRODUCT USED FOR UNKNOWN INDICATION
     Route: 065
  4. EPLERENONE. [Concomitant]
     Active Substance: EPLERENONE
     Indication: PRODUCT USED FOR UNKNOWN INDICATION
     Route: 065
  5. PROVENGE [Suspect]
     Active Substance: SIPULEUCEL-T
     Dosage: UNK
     Route: 042
     Dates: start: 20140919
  6. MAGNESIUM [Concomitant]
     Active Substance: MAGNESIUM
     Indication: PRODUCT USED FOR UNKNOWN INDICATION
  7. ASPIRIN. [Concomitant]
     Active Substance: ASPIRIN
     Indication: PRODUCT USED FOR UNKNOWN INDICATION
     Route: 065
  8. MULTI-VIT [Concomitant]
     Active Substance: VITAMINS
     Indication: PRODUCT USED FOR UNKNOWN INDICATION
     Route: 065
  9. ACETYLSALICYLIC ACID [Concomitant]
     Active Substance: ASPIRIN
     Indication: PRODUCT USED FOR UNKNOWN INDICATION
     Route: 065
  10. AMLODIPINE BESYLATE AND BENAZEPRIL HCL [Suspect]
     Active Substance: AMLODIPINE BESYLATE\BENAZEPRIL HYDROCHLORIDE
     Indication: PRODUCT USED FOR UNKNOWN INDICATION
     Route: 065
  11. VANCOMYCIN HYDROCHLORIDE. [Suspect]
     Active Substance: VANCOMYCIN HYDROCHLORIDE
     Indication: ATYPICAL PNEUMONIA
     Dosage: UNK
     Route: 065
     Dates: start: 201409, end: 201409
  12. METFORMIN [Concomitant]
     Active Substance: METFORMIN HYDROCHLORIDE
     Indication: PRODUCT USED FOR UNKNOWN INDICATION
     Route: 065
  13. PROVENGE [Suspect]
     Active Substance: SIPULEUCEL-T
     Dosage: UNK
     Route: 042
     Dates: start: 20140905
  14. COUMADINE [Concomitant]
     Active Substance: WARFARIN SODIUM
     Indication: PRODUCT USED FOR UNKNOWN INDICATION
     Route: 065
  15. METOPROLOL [Concomitant]
     Active Substance: METOPROLOL
     Indication: PRODUCT USED FOR UNKNOWN INDICATION

REACTIONS (18)
  - Haematuria [Unknown]
  - Chills [Recovered/Resolved]
  - Urine output decreased [Unknown]
  - Renal tubular necrosis [Unknown]
  - Pyrexia [Recovered/Resolved]
  - Acute kidney injury [Recovering/Resolving]
  - Thrombophlebitis superficial [Unknown]
  - Dyspnoea [Unknown]
  - Hypophagia [Unknown]
  - Toxicity to various agents [Unknown]
  - Oedema peripheral [Unknown]
  - Diarrhoea [Unknown]
  - Pulmonary embolism [Unknown]
  - Prostatic specific antigen increased [Unknown]
  - Drug level increased [Unknown]
  - Hypoxia [Recovered/Resolved]
  - Weight decreased [Unknown]
  - Atypical pneumonia [Recovering/Resolving]

NARRATIVE: CASE EVENT DATE: 201409
